FAERS Safety Report 4726630-5 (Version None)
Quarter: 2005Q3

REPORT INFORMATION
  Report Type: 
  Country: None (occurrence: None)
  Receive Date: 20050726
  Receipt Date: 20050713
  Transmission Date: 20060218
  Serious: Yes (Other)
  Sender: FDA-Public Use
  Company Number: 2005104200

PATIENT
  Age: 61 Year
  Sex: Female

DRUGS (4)
  1. METHYLPREDNISOLONE [Suspect]
     Indication: DERMATOMYOSITIS
     Dosage: 1 GRAM (DAILY FOR 3 DAYS)
  2. PREDNISONE [Suspect]
     Indication: DERMATOMYOSITIS
     Dosage: 1.2 MG/KG (DAILY)
  3. CYCLOPHOSPHAMIDE [Suspect]
     Indication: DERMATOMYOSITIS
     Dosage: 500MG/BW (DAILY)
  4. TMP-SMX (SULFAMETHOXAZOLE, TRIMETHOPRIM) [Suspect]
     Indication: PNEUMOCYSTIS JIROVECI PNEUMONIA
     Dosage: 20 MG/KG (DAILY), ORAL
     Route: 048

REACTIONS (5)
  - ADVERSE DRUG REACTION [None]
  - BLOOD BETA-D-GLUCAN INCREASED [None]
  - BLOOD LACTATE DEHYDROGENASE INCREASED [None]
  - PNEUMOCYSTIS JIROVECI PNEUMONIA [None]
  - RED BLOOD CELL SEDIMENTATION RATE INCREASED [None]
